FAERS Safety Report 10055848 (Version 1)
Quarter: 2014Q2

REPORT INFORMATION
  Report Type: Spontaneous
  Country: US (occurrence: US)
  Receive Date: 20140403
  Receipt Date: 20140403
  Transmission Date: 20141212
  Serious: Yes (Hospitalization)
  Sender: FDA-Public Use
  Company Number: US-BAYER-2014-049510

PATIENT
  Age: 20 Year
  Sex: Female
  Weight: 52.61 kg

DRUGS (7)
  1. YAZ [Suspect]
  2. YASMIN [Suspect]
  3. TORADOL [Concomitant]
     Dosage: 80 MG, UNK
     Route: 042
  4. HYDROCODONE W/ACETAMINOPHEN [Concomitant]
     Indication: PAIN
     Dosage: 500 MG, BID
  5. IBUPROFEN [Concomitant]
     Indication: PAIN
     Dosage: 600 MG, UNK
  6. MORPHINE SULFATE [Concomitant]
     Indication: PAIN
     Dosage: 1 MG, UNK
     Route: 042
  7. PROMETHAZINE HYDROCHLORIDE [Concomitant]
     Indication: NAUSEA
     Dosage: 12.5 MG, UNK
     Route: 042

REACTIONS (2)
  - Pulmonary embolism [None]
  - Deep vein thrombosis [None]
